FAERS Safety Report 4560379-7 (Version None)
Quarter: 2005Q1

REPORT INFORMATION
  Report Type: 
  Country: None (occurrence: None)
  Receive Date: 20050125
  Receipt Date: 20050114
  Transmission Date: 20050727
  Serious: Yes (Other)
  Sender: FDA-Public Use
  Company Number: CA-JNJFOC-20050104531

PATIENT
  Sex: Female

DRUGS (4)
  1. TYLENOL (CAPLET) [Suspect]
     Route: 049
  2. TYLENOL (CAPLET) [Suspect]
     Indication: DRUG USE FOR UNKNOWN INDICATION
     Route: 049
  3. DIGICAL [Concomitant]
  4. LOSEC [Concomitant]

REACTIONS (4)
  - ALOPECIA [None]
  - ANGER [None]
  - DRUG WITHDRAWAL SYNDROME [None]
  - IRRITABILITY [None]
